FAERS Safety Report 21147478 (Version 1)
Quarter: 2022Q3

REPORT INFORMATION
  Report Type: Report from Study
  Country: CA (occurrence: CA)
  Receive Date: 20220729
  Receipt Date: 20220729
  Transmission Date: 20221027
  Serious: Yes (Other)
  Sender: FDA-Public Use
  Company Number: CA-BAYER-2022A103988

PATIENT
  Age: 74 Year
  Sex: Female

DRUGS (1)
  1. EYLEA [Suspect]
     Active Substance: AFLIBERCEPT
     Indication: Choroidal neovascularisation
     Dosage: FORMULATION: SOLUTION FOR INJECTION; STRENGTH: 40MG/ML

REACTIONS (5)
  - Subretinal fibrosis [Unknown]
  - Vitreoretinal traction syndrome [Unknown]
  - Macular hole [Unknown]
  - Cataract [Unknown]
  - Intraocular lens implant [Unknown]
